FAERS Safety Report 12225561 (Version 1)
Quarter: 2016Q1

REPORT INFORMATION
  Report Type: Spontaneous
  Country: US (occurrence: None)
  Receive Date: 20160330
  Receipt Date: 20160330
  Transmission Date: 20160526
  Serious: No
  Sender: FDA-Public Use
  Company Number: None

PATIENT

DRUGS (2)
  1. LIPITOR [Suspect]
     Active Substance: ATORVASTATIN CALCIUM
  2. TRICOR [Suspect]
     Active Substance: FENOFIBRATE

REACTIONS (3)
  - Rash [None]
  - Haemorrhage [None]
  - Mobility decreased [None]
